FAERS Safety Report 5931196-8 (Version None)
Quarter: 2008Q4

REPORT INFORMATION
  Report Type: 
  Country: None (occurrence: None)
  Receive Date: 20081027
  Receipt Date: 20081022
  Transmission Date: 20090506
  Serious: Yes (Life-Threatening, Other)
  Sender: FDA-Public Use
  Company Number: PHHY2008BR25638

PATIENT
  Sex: Female
  Weight: 55 kg

DRUGS (3)
  1. EXELON [Suspect]
     Indication: DEMENTIA ALZHEIMER'S TYPE
     Dosage: 2 CAPSULES,1.5MG
     Route: 048
  2. EXELON [Suspect]
     Dosage: 3 MG, BID
     Route: 048
  3. ENALAPRIL MALEATE [Suspect]
     Indication: BLOOD PRESSURE INCREASED
     Dosage: 1 TAB DAILY
     Route: 048

REACTIONS (8)
  - ABASIA [None]
  - ANOREXIA [None]
  - ASTHENIA [None]
  - BLOOD PRESSURE INADEQUATELY CONTROLLED [None]
  - DYSPHONIA [None]
  - FEELING ABNORMAL [None]
  - TACHYCARDIA [None]
  - WEIGHT DECREASED [None]
